FAERS Safety Report 8426800-9 (Version None)
Quarter: 2012Q2

REPORT INFORMATION
  Report Type: 
  Country: None (occurrence: None)
  Receive Date: 20120611
  Receipt Date: 20120608
  Transmission Date: 20120825
  Serious: Yes (Death, Hospitalization, Other)
  Sender: FDA-Public Use
  Company Number: PHHY2010CO66748

PATIENT
  Sex: Female

DRUGS (2)
  1. ZOLEDRONOC ACID [Suspect]
     Indication: OSTEOPOROSIS
     Dosage: 5 MG, PER 100 ML
     Route: 042
     Dates: start: 20100604
  2. AMANTADINE HCL [Concomitant]

REACTIONS (3)
  - PYREXIA [None]
  - HYPOTENSION [None]
  - CARDIO-RESPIRATORY ARREST [None]
